FAERS Safety Report 22162461 (Version 2)
Quarter: 2023Q2

REPORT INFORMATION
  Report Type: Report from Study
  Country: US (occurrence: US)
  Receive Date: 20230331
  Receipt Date: 20230404
  Transmission Date: 20230722
  Serious: Yes (Other)
  Sender: FDA-Public Use
  Company Number: US-BEH-2023156886

PATIENT
  Age: 51 Year
  Sex: Female
  Weight: 87.075 kg

DRUGS (1)
  1. BERINERT [Suspect]
     Active Substance: HUMAN C1-ESTERASE INHIBITOR
     Indication: Hereditary angioedema
     Dosage: 2000 INTERNATIONAL UNIT/KILOGRAM, AS ORDERED
     Route: 058

REACTIONS (2)
  - Hereditary angioedema [Unknown]
  - Musculoskeletal disorder [Unknown]
